FAERS Safety Report 23086372 (Version 1)
Quarter: 2023Q4

REPORT INFORMATION
  Report Type: Report from Study
  Country: US (occurrence: US)
  Receive Date: 20231019
  Receipt Date: 20231019
  Transmission Date: 20240110
  Serious: Yes (Other)
  Sender: FDA-Public Use
  Company Number: US-ABBVIE-5455193

PATIENT
  Sex: Female

DRUGS (1)
  1. HUMIRA [Suspect]
     Active Substance: ADALIMUMAB
     Indication: Colitis ulcerative
     Dosage: STRENGTH: 40 MG?CITARTE FREE
     Route: 058
     Dates: start: 20200602

REACTIONS (4)
  - Haemorrhage [Unknown]
  - Pain [Unknown]
  - Muscle spasms [Unknown]
  - Abdominal distension [Unknown]
